FAERS Safety Report 23631683 (Version 1)
Quarter: 2024Q1

REPORT INFORMATION
  Report Type: Spontaneous
  Country: HR (occurrence: None)
  Receive Date: 20240314
  Receipt Date: 20240314
  Transmission Date: 20240410
  Serious: Yes (Other)
  Sender: FDA-Public Use
  Company Number: 2024A055624

PATIENT
  Age: 63 Year
  Sex: Female

DRUGS (5)
  1. QUETIAPINE [Suspect]
     Active Substance: QUETIAPINE
     Dosage: UNK
     Route: 048
     Dates: start: 20231220, end: 20231220
  2. PREGABALIN [Suspect]
     Active Substance: PREGABALIN
     Dosage: UNK
     Route: 048
     Dates: start: 20231220, end: 20231220
  3. PHENOBARBITAL [Suspect]
     Active Substance: PHENOBARBITAL
     Route: 048
     Dates: start: 20231220, end: 20231220
  4. LORAZEPAM [Suspect]
     Active Substance: LORAZEPAM
     Dosage: UNK
     Route: 048
     Dates: start: 20231220, end: 20231220
  5. CLOZAPINE [Suspect]
     Active Substance: CLOZAPINE
     Dosage: UNK
     Route: 048
     Dates: start: 20231220, end: 20231220

REACTIONS (4)
  - Methaemoglobinaemia [Unknown]
  - Vomiting [Unknown]
  - Nausea [Unknown]
  - Suicide attempt [Unknown]

NARRATIVE: CASE EVENT DATE: 20231220
